FAERS Safety Report 13648402 (Version 1)
Quarter: 2017Q2

REPORT INFORMATION
  Report Type: Spontaneous
  Country: FR (occurrence: FR)
  Receive Date: 20170613
  Receipt Date: 20170613
  Transmission Date: 20170830
  Serious: Yes (Other)
  Sender: FDA-Public Use
  Company Number: FR-BAYER-2017-110159

PATIENT
  Age: 32 Year
  Sex: Female

DRUGS (1)
  1. MIRENA [Suspect]
     Active Substance: LEVONORGESTREL
     Indication: CONTRACEPTION
     Dosage: 20 MCG/24HR, CONT
     Route: 015
     Dates: start: 20101102, end: 20151102

REACTIONS (14)
  - Irritability [Unknown]
  - Palpitations [Unknown]
  - Back pain [Unknown]
  - Vertigo [Unknown]
  - Patient isolation [Unknown]
  - Psychotic disorder [Unknown]
  - Illness anxiety disorder [Unknown]
  - Fatigue [Unknown]
  - Pelvic pain [Unknown]
  - Depression [Unknown]
  - Migraine [Unknown]
  - Varicose vein [Unknown]
  - Nervousness [Unknown]
  - Insomnia [Unknown]

NARRATIVE: CASE EVENT DATE: 2013
